FAERS Safety Report 6673075-7 (Version None)
Quarter: 2010Q2

REPORT INFORMATION
  Report Type: 
  Country: None (occurrence: None)
  Receive Date: 20100408
  Receipt Date: 20100402
  Transmission Date: 20101027
  Serious: Yes (Life-Threatening, Hospitalization, Other)
  Sender: FDA-Public Use
  Company Number: PHHY2010DE21503

PATIENT
  Sex: Female
  Weight: 91 kg

DRUGS (12)
  1. ALISKIREN ALI+ [Suspect]
     Indication: HYPERTENSION
     Dosage: 300 MG/D
     Dates: start: 20090305, end: 20091210
  2. HYDROCHLOROTHIAZIDE [Suspect]
     Indication: DEHYDRATION
     Dosage: 12.5 MG/D
     Route: 048
  3. CAPTOPRIL [Concomitant]
     Indication: HYPERTENSION
     Dosage: 100 MG/D
     Route: 048
     Dates: end: 20091210
  4. TRIAMTEREN [Concomitant]
     Indication: HYPERTENSION
     Dosage: UNK
     Dates: end: 20091210
  5. BISOPROLOL [Concomitant]
     Indication: HYPERTENSION
     Dosage: UNK
     Route: 048
  6. NEPRESSOL [Concomitant]
     Indication: HYPERTENSION
     Dosage: UNK
     Route: 048
     Dates: end: 20091210
  7. BERLINSULIN H NORMAL [Concomitant]
     Indication: TYPE 2 DIABETES MELLITUS
     Dosage: 58 IU
     Route: 058
  8. LEVEMIR [Concomitant]
     Indication: TYPE 2 DIABETES MELLITUS
     Dosage: 40 IU, UNK
     Route: 058
     Dates: end: 20091210
  9. ACE INHIBITOR NOS [Concomitant]
  10. CALCIUM CHANNEL BLOCKERS [Concomitant]
     Dosage: UNK
     Dates: start: 20091217
  11. PLATELET AGGREGATION INHIBITORS [Concomitant]
     Dosage: UNK
  12. STATIN [Concomitant]

REACTIONS (8)
  - BLOOD GLUCOSE INCREASED [None]
  - CEREBRAL ARTERY EMBOLISM [None]
  - CEREBROVASCULAR ACCIDENT [None]
  - DIABETES MELLITUS [None]
  - DIABETIC NEUROPATHY [None]
  - GLYCOSYLATED HAEMOGLOBIN INCREASED [None]
  - HEMIPARESIS [None]
  - HYPOTONIA [None]
